FAERS Safety Report 13028022 (Version 3)
Quarter: 2017Q1

REPORT INFORMATION
  Report Type: Spontaneous
  Country: US (occurrence: US)
  Receive Date: 20161214
  Receipt Date: 20170130
  Transmission Date: 20170428
  Serious: No
  Sender: FDA-Public Use
  Company Number: US-PFIZER INC-2016571000

PATIENT
  Age: 1 Year
  Sex: Male

DRUGS (2)
  1. FLU SHOT [Suspect]
     Active Substance: INFLUENZA VIRUS VACCINE
  2. GENOTROPIN [Suspect]
     Active Substance: SOMATROPIN
     Dosage: 0.4 MG, 1X/DAY (NIGHTLY AT BEDTIME)

REACTIONS (3)
  - Nasopharyngitis [Unknown]
  - Malaise [Unknown]
  - Pyrexia [Unknown]
